FAERS Safety Report 15963929 (Version 2)
Quarter: 2021Q3

REPORT INFORMATION
  Report Type: Spontaneous
  Country: US (occurrence: US)
  Receive Date: 20190214
  Receipt Date: 20210930
  Transmission Date: 20211014
  Serious: Yes (Disabling, Other)
  Sender: FDA-Public Use
  Company Number: US-TEVA-2019-US-1011280

PATIENT
  Age: 69 Year
  Sex: Female
  Weight: 76.2 kg

DRUGS (25)
  1. DOCETAXEL SAGENT [Suspect]
     Active Substance: DOCETAXEL
     Dosage: TAXOTERE: NUMBER OF CYCLE ? 06, FREQUENCY ? EVERY WEEK,VIAL
     Route: 042
     Dates: start: 20150727, end: 20150727
  2. DOCETAXEL ACCORD [Suspect]
     Active Substance: DOCETAXEL
     Indication: BREAST CANCER FEMALE
     Dosage: TAXOTERE: NUMBER OF CYCLE ? 06, FREQUENCY ? EVERY WEEK, VIAL
     Route: 042
     Dates: start: 20150615, end: 20150615
  3. DOCETAXEL ACCORD [Suspect]
     Active Substance: DOCETAXEL
     Dosage: TAXOTERE: NUMBER OF CYCLE ? 06, FREQUENCY ? EVERY WEEK, VIAL
     Route: 042
     Dates: start: 20150817, end: 20150817
  4. CYCLOPHOSPHAMIDE. [Suspect]
     Active Substance: CYCLOPHOSPHAMIDE
     Dosage: TAXOTERE: NUMBER OF CYCLE ? 06, FREQUENCY ? EVERY WEEK, VIAL
     Route: 042
     Dates: start: 20150706, end: 20150706
  5. CYCLOPHOSPHAMIDE. [Suspect]
     Active Substance: CYCLOPHOSPHAMIDE
     Dosage: TAXOTERE: NUMBER OF CYCLE ? 06, FREQUENCY ? EVERY WEEK, VIAL
     Route: 042
     Dates: start: 20150727, end: 20150727
  6. CYCLOPHOSPHAMIDE. [Suspect]
     Active Substance: CYCLOPHOSPHAMIDE
     Dosage: TAXOTERE: NUMBER OF CYCLE ? 06, FREQUENCY ? EVERY WEEK, VIAL
     Route: 042
     Dates: start: 20150817, end: 20150817
  7. DOCETAXEL SAGENT [Suspect]
     Active Substance: DOCETAXEL
     Dosage: TAXOTERE: NUMBER OF CYCLE ? 06, FREQUENCY ? EVERY WEEK,VIAL
     Route: 042
     Dates: start: 20150817, end: 20150817
  8. DOCETAXEL ACCORD [Suspect]
     Active Substance: DOCETAXEL
     Dosage: TAXOTERE: NUMBER OF CYCLE ? 06, FREQUENCY ? EVERY WEEK, VIAL
     Route: 042
     Dates: start: 20150706, end: 20150706
  9. DOCETAXEL SANOFI [Suspect]
     Active Substance: DOCETAXEL
     Indication: BREAST CANCER FEMALE
     Dosage: TAXOTERE: NUMBER OF CYCLE ? 06, FREQUENCY ? EVERY WEEK, VIAL
     Route: 042
     Dates: start: 20150615, end: 20150615
  10. DOCETAXEL SANOFI [Suspect]
     Active Substance: DOCETAXEL
     Dosage: TAXOTERE: NUMBER OF CYCLE ? 06, FREQUENCY ? EVERY WEEK, VIAL
     Route: 042
     Dates: start: 20150706, end: 20150706
  11. DOCETAXEL SANOFI [Suspect]
     Active Substance: DOCETAXEL
     Dosage: TAXOTERE: NUMBER OF CYCLE ? 06, FREQUENCY ? EVERY WEEK, VIAL
     Route: 042
     Dates: start: 20150817, end: 20150817
  12. FOSAMAX [Concomitant]
     Active Substance: ALENDRONATE SODIUM
     Route: 065
  13. DOCETAXEL SAGENT [Suspect]
     Active Substance: DOCETAXEL
     Indication: BREAST CANCER FEMALE
     Dosage: TAXOTERE: NUMBER OF CYCLE ? 06, FREQUENCY ? EVERY WEEK, VIAL
     Route: 042
     Dates: start: 20150615, end: 20150615
  14. DOCETAXEL SAGENT [Suspect]
     Active Substance: DOCETAXEL
     Dosage: TAXOTERE: NUMBER OF CYCLE ? 06, FREQUENCY ? EVERY WEEK,VIAL
     Route: 042
     Dates: start: 20150716, end: 20150716
  15. DOCETAXEL SANOFI [Suspect]
     Active Substance: DOCETAXEL
     Dosage: TAXOTERE: NUMBER OF CYCLE ? 06, FREQUENCY ? EVERY WEEK, VIAL
     Route: 042
     Dates: start: 20150727, end: 20150727
  16. METOPROLOL. [Concomitant]
     Active Substance: METOPROLOL
     Route: 048
     Dates: start: 2012
  17. ALENDRONATE [Concomitant]
     Active Substance: ALENDRONATE SODIUM
     Route: 048
     Dates: start: 2012
  18. CYCLOPHOSPHAMIDE. [Suspect]
     Active Substance: CYCLOPHOSPHAMIDE
     Indication: BREAST CANCER FEMALE
     Dosage: TAXOTERE: NUMBER OF CYCLE ? 06, FREQUENCY ? EVERY WEEK, VIAL
     Route: 042
     Dates: start: 20150615, end: 20150615
  19. DOCETAXEL ACCORD [Suspect]
     Active Substance: DOCETAXEL
     Dosage: TAXOTERE: NUMBER OF CYCLE ? 06, FREQUENCY ? EVERY WEEK, VIAL
     Route: 042
     Dates: start: 20150727, end: 20150727
  20. ASPIRIN. [Concomitant]
     Active Substance: ASPIRIN
     Indication: ANTICOAGULANT THERAPY
     Dosage: SINCE 5 YEARS BY MOUTH DAILY
     Route: 048
  21. VITAMIN E [Concomitant]
     Active Substance: .ALPHA.-TOCOPHEROL
     Dosage: SINCE 5 YEARS
     Route: 065
  22. METFORMIN [Concomitant]
     Active Substance: METFORMIN HYDROCHLORIDE
     Route: 048
     Dates: start: 2012
  23. LISINOPRIL. [Concomitant]
     Active Substance: LISINOPRIL
     Route: 048
     Dates: start: 2012
  24. SIMVASTATIN. [Concomitant]
     Active Substance: SIMVASTATIN
     Dosage: QHS
     Route: 048
     Dates: start: 2012
  25. CHOLECALCIFEROL [Concomitant]
     Active Substance: CHOLECALCIFEROL
     Route: 048
     Dates: start: 2012

REACTIONS (5)
  - Alopecia areata [Not Recovered/Not Resolved]
  - Madarosis [Not Recovered/Not Resolved]
  - Neutropenia [Unknown]
  - Hair texture abnormal [Not Recovered/Not Resolved]
  - Hair colour changes [Not Recovered/Not Resolved]

NARRATIVE: CASE EVENT DATE: 2015
